FAERS Safety Report 14381369 (Version 1)
Quarter: 2018Q1

REPORT INFORMATION
  Report Type: Spontaneous
  Country: US (occurrence: US)
  Receive Date: 20180111
  Receipt Date: 20180111
  Transmission Date: 20180509
  Serious: Yes (Hospitalization)
  Sender: FDA-Public Use
  Company Number: None

PATIENT
  Age: 72 Year
  Sex: Male
  Weight: 88 kg

DRUGS (1)
  1. TEMOZOLOMIDE 140MG CAPS AMER #5 *PO [Suspect]
     Active Substance: TEMOZOLOMIDE
     Indication: BRAIN NEOPLASM BENIGN
     Route: 048
     Dates: start: 20171218

REACTIONS (3)
  - Loss of consciousness [None]
  - Muscle twitching [None]
  - Dysarthria [None]

NARRATIVE: CASE EVENT DATE: 20180110
